FAERS Safety Report 8073974-8 (Version None)
Quarter: 2012Q1

REPORT INFORMATION
  Report Type: 
  Country: None (occurrence: None)
  Receive Date: 20120126
  Receipt Date: 20120113
  Transmission Date: 20120608
  Serious: Yes (Other)
  Sender: FDA-Public Use
  Company Number: FR-ELI_LILLY_AND_COMPANY-FR201107001186

PATIENT
  Age: 54 Year
  Sex: Male
  Weight: 54 kg

DRUGS (9)
  1. VITAMIN B-12 [Concomitant]
     Dosage: UNK
  2. FOLIC ACID [Concomitant]
     Dosage: UNK
  3. DEXAMETHASONE [Concomitant]
     Dosage: UNK
  4. ALIMTA [Suspect]
     Dosage: 500 MG/M2, UNK
     Route: 042
     Dates: start: 20110704, end: 20110725
  5. PRIMPERAN TAB [Concomitant]
  6. ALIMTA [Suspect]
     Indication: LUNG ADENOCARCINOMA METASTATIC
     Dosage: UNK, UNKNOWN
     Dates: start: 20110405, end: 20110704
  7. EMEND [Concomitant]
  8. CISPLATIN [Concomitant]
     Dosage: 75 MG/M2, UNK
     Route: 042
     Dates: start: 20110405, end: 20110704
  9. ZOFRAN [Concomitant]

REACTIONS (3)
  - SKIN EXFOLIATION [None]
  - SKIN CHAPPED [None]
  - CONJUNCTIVITIS [None]
